FAERS Safety Report 10227925 (Version 1)
Quarter: 2014Q2

REPORT INFORMATION
  Report Type: Spontaneous
  Country: ES (occurrence: ES)
  Receive Date: 20140610
  Receipt Date: 20140610
  Transmission Date: 20141212
  Serious: Yes (Death)
  Sender: FDA-Public Use
  Company Number: ES-CELGENEUS-144-21660-14055393

PATIENT
  Sex: Female

DRUGS (1)
  1. ABRAXANE [Suspect]
     Indication: BREAST CANCER
     Dosage: 260 MILLIGRAM/SQ. METER
     Route: 065
     Dates: start: 201209, end: 201303

REACTIONS (4)
  - Death [Fatal]
  - Paraesthesia [Unknown]
  - Asthenia [Unknown]
  - Breast cancer [Unknown]
